FAERS Safety Report 8828709 (Version 3)
Quarter: 2012Q4

REPORT INFORMATION
  Report Type: 
  Country: US (occurrence: US)
  Receive Date: 20121008
  Receipt Date: 20121205
  Transmission Date: 20130627
  Serious: Yes (Other)
  Sender: FDA-Public Use
  Company Number: US-PFIZER INC-2012248651

PATIENT
  Sex: Female

DRUGS (2)
  1. LYRICA [Suspect]
     Dosage: UNK
     Dates: start: 20111001
  2. PROTONIX [Suspect]
     Dosage: UNK
     Dates: start: 20111001

REACTIONS (3)
  - Cerebrovascular accident [Unknown]
  - Tongue disorder [Unknown]
  - Speech disorder [Unknown]
